FAERS Safety Report 17189190 (Version 1)
Quarter: 2019Q4

REPORT INFORMATION
  Report Type: Spontaneous
  Country: FR (occurrence: FR)
  Receive Date: 20191223
  Receipt Date: 20191223
  Transmission Date: 20200122
  Serious: Yes (Life-Threatening)
  Sender: FDA-Public Use
  Company Number: FR-ACCORD-166308

PATIENT
  Age: 62 Year
  Sex: Male
  Weight: 110 kg

DRUGS (12)
  1. CLOZAPINE. [Suspect]
     Active Substance: CLOZAPINE
     Indication: PSYCHOTIC DISORDER
     Route: 048
     Dates: start: 20191024, end: 20191105
  2. ALPRAZOLAM ARROW [Suspect]
     Active Substance: ALPRAZOLAM
     Indication: ANXIETY
     Dosage: STRENGTH : 0.25 MG
     Route: 048
     Dates: start: 20190801, end: 20191105
  3. ATORVASTATIN [Concomitant]
     Active Substance: ATORVASTATIN
  4. ARIPIPRAZOLE. [Suspect]
     Active Substance: ARIPIPRAZOLE
     Indication: PSYCHOTIC DISORDER
     Dosage: STRENGTH : 15 MG
     Route: 048
     Dates: start: 20190909, end: 20191105
  5. LOXAPAC [Suspect]
     Active Substance: LOXAPINE
     Indication: PSYCHOTIC DISORDER
     Dosage: STRENGTH : 50 MG / 2 ML
     Route: 030
     Dates: start: 20190731, end: 20191105
  6. MIANSERIN [Suspect]
     Active Substance: MIANSERIN
     Indication: DEPRESSION
     Route: 048
     Dates: start: 20190909, end: 20191105
  7. NORMACOL [Concomitant]
     Active Substance: HERBALS\KARAYA GUM
  8. LEPTICUR [Suspect]
     Active Substance: TROPATEPINE HYDROCHLORIDE
     Indication: PARKINSONISM
     Dosage: STRENGTH : 10 MG
     Route: 048
     Dates: start: 20190801, end: 20191105
  9. KARDEGIC [Concomitant]
     Active Substance: ASPIRIN DL-LYSINE
  10. CELIPROLOL [Concomitant]
     Active Substance: CELIPROLOL
  11. QUETIAPINE MYLAN PHARMA [Suspect]
     Active Substance: QUETIAPINE
     Indication: PSYCHOTIC DISORDER
     Dosage: STRENGTH :  50 MG
     Route: 048
     Dates: start: 20190909, end: 20191105
  12. PERINDOPRIL [Concomitant]
     Active Substance: PERINDOPRIL

REACTIONS (5)
  - Faecaloma [Recovered/Resolved]
  - Hypothermia [Recovered/Resolved]
  - Subileus [Recovered/Resolved]
  - Septic shock [Recovered/Resolved]
  - Acute kidney injury [Recovered/Resolved]

NARRATIVE: CASE EVENT DATE: 20191102
